FAERS Safety Report 10048874 (Version 1)
Quarter: 2014Q1

REPORT INFORMATION
  Report Type: Spontaneous
  Country: IT (occurrence: IT)
  Receive Date: 20140331
  Receipt Date: 20140331
  Transmission Date: 20141002
  Serious: Yes (Other)
  Sender: FDA-Public Use
  Company Number: IT-GILEAD-2014-0097985

PATIENT
  Age: 77 Year
  Sex: Male

DRUGS (5)
  1. RANOLAZINE [Suspect]
     Indication: ANGINA PECTORIS
     Dosage: 375 MG, BID
     Route: 048
     Dates: start: 20140301, end: 20140315
  2. CARDIOASPIRIN [Concomitant]
     Dosage: 100 MG, UNK
  3. COTAREG [Concomitant]
     Dosage: 1 DF, UNK
  4. METHOTREXATE [Concomitant]
     Dosage: 20 MG, UNK
  5. TOTALIP [Concomitant]
     Dosage: 10 MG, UNK

REACTIONS (4)
  - Rectal haemorrhage [Recovered/Resolved]
  - Vertigo [Recovered/Resolved]
  - Constipation [Recovered/Resolved]
  - Asthenia [Recovered/Resolved]
